FAERS Safety Report 7046107-4 (Version None)
Quarter: 2010Q4

REPORT INFORMATION
  Report Type: 
  Country: None (occurrence: None)
  Receive Date: 20101014
  Receipt Date: 20101005
  Transmission Date: 20110411
  Serious: Yes (Death)
  Sender: FDA-Public Use
  Company Number: SI-ABBOTT-10P-261-0669808-00

PATIENT
  Age: 53 Year
  Sex: Male
  Weight: 102 kg

DRUGS (2)
  1. TARKA [Suspect]
     Indication: HYPERTENSION
     Dosage: 2/240MG, ONCE PER DAY
     Route: 048
     Dates: start: 20081222, end: 20100118
  2. VASILIP [Concomitant]
     Indication: PRODUCT USED FOR UNKNOWN INDICATION
     Route: 048

REACTIONS (1)
  - EPILEPSY [None]
